FAERS Safety Report 19411736 (Version 2)
Quarter: 2021Q3

REPORT INFORMATION
  Report Type: Report from Study
  Country: NL (occurrence: NL)
  Receive Date: 20210614
  Receipt Date: 20210812
  Transmission Date: 20211014
  Serious: Yes (Hospitalization)
  Sender: FDA-Public Use
  Company Number: NL-GLAXOSMITHKLINE-NL2021123803

PATIENT
  Age: 74 Year
  Sex: Female
  Weight: 81 kg

DRUGS (6)
  1. VALACICLOVIR [Suspect]
     Active Substance: VALACYCLOVIR HYDROCHLORIDE
     Indication: PROPHYLAXIS
     Dosage: 500 MG, 1D
     Route: 048
     Dates: start: 20210509, end: 20210608
  2. FLUDARABINE PHOSPHATE. [Suspect]
     Active Substance: FLUDARABINE PHOSPHATE
     Indication: NON-SMALL CELL LUNG CANCER
     Dosage: 43 MG, CYC
     Route: 042
     Dates: start: 20210426
  3. MESNA. [Concomitant]
     Active Substance: MESNA
     Indication: NON-SMALL CELL LUNG CANCER
     Dosage: 780 MG, CYC
     Route: 042
     Dates: start: 20210426
  4. COTRIMOXAZOLE [Suspect]
     Active Substance: SULFAMETHOXAZOLE\TRIMETHOPRIM
     Indication: PROPHYLAXIS
     Dosage: 80 MG, 1D
     Route: 048
     Dates: start: 20210513, end: 20210603
  5. GSK3377794 [Suspect]
     Active Substance: LETETRESGENE AUTOLEUCEL
     Indication: NON-SMALL CELL LUNG CANCER
     Dosage: 4.3 X 10^9 CELLS SINGLE
     Route: 042
     Dates: start: 20210503
  6. CYCLOPHOSPHAMIDE. [Suspect]
     Active Substance: CYCLOPHOSPHAMIDE
     Indication: NON-SMALL CELL LUNG CANCER
     Dosage: 600 MG/M2, CYC
     Route: 042
     Dates: start: 20210426

REACTIONS (1)
  - Toxic skin eruption [Not Recovered/Not Resolved]

NARRATIVE: CASE EVENT DATE: 20210607
